FAERS Safety Report 6200124-2 (Version None)
Quarter: 2009Q2

REPORT INFORMATION
  Report Type: 
  Country: None (occurrence: None)
  Receive Date: 20090522
  Receipt Date: 20090520
  Transmission Date: 20091009
  Serious: Yes (Death, Other)
  Sender: FDA-Public Use
  Company Number: PHHY2008JP20423

PATIENT
  Sex: Male

DRUGS (4)
  1. ZOLEDRONIC ACID [Suspect]
     Indication: METASTASES TO BONE
     Dosage: 4 MG EVERY 4 WEEKS
     Route: 042
     Dates: start: 20070628, end: 20071213
  2. ZOLEDRONIC ACID [Suspect]
     Dosage: 4 MG EVERY 4 WEEKS
     Route: 042
     Dates: start: 20080110, end: 20080403
  3. IMUNACE [Concomitant]
     Dosage: 700000 U, UNK
     Route: 042
     Dates: start: 20070628, end: 20080501
  4. NIFEDIPINE [Concomitant]
     Dosage: 800 MG
     Route: 048
     Dates: start: 20080508, end: 20080517

REACTIONS (4)
  - BLOOD CREATININE INCREASED [None]
  - BLOOD UREA INCREASED [None]
  - CEREBRAL HAEMORRHAGE [None]
  - RENAL IMPAIRMENT [None]
